FAERS Safety Report 18906787 (Version 3)
Quarter: 2021Q2

REPORT INFORMATION
  Report Type: Report from Study
  Country: None (occurrence: PR)
  Receive Date: 20210218
  Receipt Date: 20210618
  Transmission Date: 20210717
  Serious: Yes (Other)
  Sender: FDA-Public Use
  Company Number: PR-ABBVIE-21K-131-3776263-00

PATIENT
  Age: 58 Year
  Sex: Male
  Weight: 79.9 kg

DRUGS (16)
  1. HUMIRA [Suspect]
     Active Substance: ADALIMUMAB
     Route: 058
     Dates: start: 2021
  2. LOTREL [Concomitant]
     Active Substance: AMLODIPINE BESYLATE\BENAZEPRIL HYDROCHLORIDE
     Indication: HYPERTENSION
     Dosage: 10/20MG
     Route: 048
     Dates: start: 2001, end: 2011
  3. HUMIRA [Suspect]
     Active Substance: ADALIMUMAB
     Route: 058
     Dates: start: 200905, end: 201901
  4. ULTRACET [Concomitant]
     Active Substance: ACETAMINOPHEN\TRAMADOL HYDROCHLORIDE
     Indication: PAIN
     Route: 048
     Dates: start: 2001
  5. HUMIRA [Suspect]
     Active Substance: ADALIMUMAB
     Indication: RHEUMATOID ARTHRITIS
     Route: 058
     Dates: start: 2021, end: 2021
  6. HUMIRA [Suspect]
     Active Substance: ADALIMUMAB
     Route: 058
  7. HUMIRA [Suspect]
     Active Substance: ADALIMUMAB
     Indication: PRODUCT USED FOR UNKNOWN INDICATION
     Route: 058
     Dates: start: 2007
  8. ULTRACET [Concomitant]
     Active Substance: ACETAMINOPHEN\TRAMADOL HYDROCHLORIDE
     Indication: INFLAMMATION
  9. GABAPENTIN. [Concomitant]
     Active Substance: GABAPENTIN
     Indication: INFLAMMATION
  10. BACLOFEN. [Concomitant]
     Active Substance: BACLOFEN
     Indication: PAIN
     Route: 048
     Dates: start: 2019
  11. BACLOFEN. [Concomitant]
     Active Substance: BACLOFEN
     Indication: INFLAMMATION
  12. DICLOFENAC [Concomitant]
     Active Substance: DICLOFENAC
     Indication: PAIN
     Route: 048
     Dates: start: 2014
  13. GABAPENTIN. [Concomitant]
     Active Substance: GABAPENTIN
     Indication: PAIN
     Dosage: 600MG OR 800MG
     Route: 048
     Dates: start: 2011
  14. INDAPAMIDE. [Concomitant]
     Active Substance: INDAPAMIDE
     Indication: DIURETIC THERAPY
     Route: 048
     Dates: start: 2001
  15. FOLIC ACID. [Concomitant]
     Active Substance: FOLIC ACID
     Indication: PRODUCT USED FOR UNKNOWN INDICATION
     Route: 048
     Dates: start: 2010
  16. DICLOFENAC [Concomitant]
     Active Substance: DICLOFENAC
     Indication: INFLAMMATION

REACTIONS (8)
  - Weight decreased [Recovered/Resolved]
  - Gastrointestinal inflammation [Recovered/Resolved]
  - Pain in extremity [Recovered/Resolved]
  - Diarrhoea [Recovered/Resolved]
  - Arthralgia [Recovered/Resolved]
  - Intervertebral disc protrusion [Recovered/Resolved]
  - Abdominal pain [Recovered/Resolved]
  - Therapeutic product effect decreased [Not Recovered/Not Resolved]

NARRATIVE: CASE EVENT DATE: 202101
